FAERS Safety Report 6140402-9 (Version None)
Quarter: 2009Q1

REPORT INFORMATION
  Report Type: 
  Country: None (occurrence: None)
  Receive Date: 20090331
  Receipt Date: 20090318
  Transmission Date: 20090719
  Serious: Yes (Other)
  Sender: FDA-Public Use
  Company Number: 231134K09USA

PATIENT
  Age: 55 Year
  Sex: Male

DRUGS (5)
  1. REBIF [Suspect]
     Indication: MULTIPLE SCLEROSIS
     Dosage: 44 MCG, 3 IN 1 WEEKS, SUBCUTANEOUS
     Route: 058
     Dates: start: 20080915
  2. TIZANIDINE HCL [Concomitant]
  3. UNSPECIFIED BLOOD PRESSURE MEDICATIONS (ALL OTHER THERAPEUTIC PRODUCTS [Concomitant]
  4. UNSPECIFIED CHOLESTEROL MEDICATION (CHOLESTEROL-AND TRIGLYCERIDE REDUC [Concomitant]
  5. UNSPECIFIED BOWEL IRREGULARITY MEDICATION (ALL OTHER THERAPEUTIC PRODU [Concomitant]

REACTIONS (3)
  - CARDIAC FAILURE CONGESTIVE [None]
  - FLUID OVERLOAD [None]
  - MUSCLE SPASMS [None]
